FAERS Safety Report 7783815-1 (Version None)
Quarter: 2011Q3

REPORT INFORMATION
  Report Type: 
  Country: None (occurrence: None)
  Receive Date: 20110928
  Receipt Date: 20110913
  Transmission Date: 20111222
  Serious: Yes (Hospitalization)
  Sender: FDA-Public Use
  Company Number: TR-JNJFOC-20110910280

PATIENT
  Sex: Female

DRUGS (3)
  1. CETIRIZINE HCL [Suspect]
     Route: 048
  2. CETIRIZINE HCL [Suspect]
     Indication: URTICARIA
     Route: 048
     Dates: start: 20110812, end: 20110814
  3. AVIL [Suspect]
     Indication: URTICARIA
     Route: 065
     Dates: start: 20110812

REACTIONS (1)
  - ANGIOEDEMA [None]
